FAERS Safety Report 6333458-1 (Version None)
Quarter: 2009Q3

REPORT INFORMATION
  Report Type: 
  Country: None (occurrence: None)
  Receive Date: 20090828
  Receipt Date: 20090824
  Transmission Date: 20100115
  Serious: Yes (Other)
  Sender: FDA-Public Use
  Company Number: PHEH2009US09832

PATIENT
  Sex: Female

DRUGS (9)
  1. EXFORGE [Suspect]
     Dosage: 320/10 AMMG
  2. DIOVAN [Suspect]
     Dosage: 160 MG, UNK
  3. ACTOPLUS MET [Suspect]
     Dosage: 15/500 MG, UNK
  4. JANUVIA [Suspect]
  5. CRESTOR [Suspect]
  6. HYDROCHLOROTHIAZIDE [Concomitant]
     Dosage: 25 MG, UNK
  7. COREG [Concomitant]
     Dosage: 20 MG, UNK
  8. ASPIRIN [Concomitant]
     Dosage: 81 MG, UNK
  9. LIPITOR [Concomitant]
     Dosage: 10 MG, UNK

REACTIONS (6)
  - ABDOMINAL PAIN UPPER [None]
  - HYPERTENSION [None]
  - HYPOAESTHESIA [None]
  - HYPOAESTHESIA FACIAL [None]
  - MUSCULOSKELETAL CHEST PAIN [None]
  - PAIN [None]
